FAERS Safety Report 8404592 (Version 2)
Quarter: 2013Q3

REPORT INFORMATION
  Report Type: Report from Study
  Country: FR (occurrence: FR)
  Receive Date: 20120214
  Receipt Date: 20130830
  Transmission Date: 20140515
  Serious: Yes (Death, Hospitalization)
  Sender: FDA-Public Use
  Company Number: FR-ASTELLAS-2012US001709

PATIENT
  Age: 57 Year
  Sex: Female
  Weight: 59 kg

DRUGS (4)
  1. ERLOTINIB TABLET [Suspect]
     Indication: LUNG NEOPLASM MALIGNANT
     Dosage: 150 MG, UNKNOWN/D
     Route: 048
     Dates: start: 20111123
  2. BEVACIZUMAB [Suspect]
     Indication: NON-SMALL CELL LUNG CANCER
     Dosage: UNK
     Route: 065
     Dates: start: 20110627, end: 20110627
  3. ROCEPHINE [Concomitant]
     Indication: LUNG INFECTION
     Dosage: UNK
     Route: 065
     Dates: start: 20120101
  4. TAVANIC [Concomitant]
     Indication: LUNG INFECTION
     Dosage: UNK
     Route: 065

REACTIONS (1)
  - Lung infection [Fatal]
